FAERS Safety Report 22223334 (Version 1)
Quarter: 2023Q2

REPORT INFORMATION
  Report Type: Spontaneous
  Country: US (occurrence: US)
  Receive Date: 20230418
  Receipt Date: 20230418
  Transmission Date: 20230722
  Serious: No
  Sender: FDA-Public Use
  Company Number: US-ELI_LILLY_AND_COMPANY-US202304007619

PATIENT
  Sex: Male

DRUGS (1)
  1. MOUNJARO [Suspect]
     Active Substance: TIRZEPATIDE
     Indication: Glucose tolerance impaired
     Dosage: 2.5 MG, UNKNOWN
     Route: 058
     Dates: start: 20230407

REACTIONS (6)
  - Eructation [Unknown]
  - Abdominal pain [Unknown]
  - Nausea [Unknown]
  - Dyspepsia [Unknown]
  - Diarrhoea [Unknown]
  - Off label use [Unknown]
